FAERS Safety Report 4393811-2 (Version None)
Quarter: 2004Q3

REPORT INFORMATION
  Report Type: 
  Country: None (occurrence: None)
  Receive Date: 20040707
  Receipt Date: 20040630
  Transmission Date: 20050211
  Serious: Yes (Other)
  Sender: FDA-Public Use
  Company Number: HQWYE838801JUL04

PATIENT
  Age: 25 Year
  Sex: Female

DRUGS (2)
  1. EVANOR (LEVONORGESTREL/ETHINYL ESTRADIOL, TABLET) [Suspect]
     Indication: CONTRACEPTION
     Dosage: 1 TABLET DAILY ORAL
     Route: 048
     Dates: start: 20040501, end: 20040601
  2. AMPLIUM (AMPICILLIN TRIHYDRATE/CLOXACILLIN SODIUM) [Concomitant]

REACTIONS (3)
  - DRUG INEFFECTIVE [None]
  - PREGNANCY ON ORAL CONTRACEPTIVE [None]
  - UNINTENDED PREGNANCY [None]
